FAERS Safety Report 12439660 (Version 1)
Quarter: 2016Q2

REPORT INFORMATION
  Report Type: Report from Study
  Country: AU (occurrence: AU)
  Receive Date: 20160606
  Receipt Date: 20160606
  Transmission Date: 20160815
  Serious: Yes (Other)
  Sender: FDA-Public Use
  Company Number: AU-BIOGEN-2015BI157826

PATIENT
  Age: 61 Year
  Sex: Male

DRUGS (1)
  1. TECFIDERA [Suspect]
     Active Substance: DIMETHYL FUMARATE
     Indication: MULTIPLE SCLEROSIS
     Route: 048
     Dates: start: 20131213

REACTIONS (7)
  - Tooth extraction [Recovered/Resolved]
  - Pain in extremity [Not Recovered/Not Resolved]
  - Dry mouth [Unknown]
  - Tooth disorder [Unknown]
  - White blood cell count decreased [Unknown]
  - Sinusitis [Unknown]
  - Trigeminal neuralgia [Unknown]

NARRATIVE: CASE EVENT DATE: 2013
